FAERS Safety Report 4579283-3 (Version None)
Quarter: 2005Q1

REPORT INFORMATION
  Report Type: 
  Country: None (occurrence: None)
  Receive Date: 20050209
  Receipt Date: 20040203
  Transmission Date: 20050727
  Serious: No
  Sender: FDA-Public Use
  Company Number: 2005PK00212

PATIENT
  Age: 29 Year
  Sex: Female

DRUGS (3)
  1. ASCO TOP [Suspect]
     Indication: MIGRAINE
  2. XANAX [Suspect]
     Indication: ANXIETY DISORDER
     Dosage: 0.25 MG DAILY PO
     Route: 048
     Dates: start: 20041201
  3. SEDATIF PC [Concomitant]

REACTIONS (2)
  - DRUG EXPOSURE DURING PREGNANCY [None]
  - FEAR OF DISEASE [None]
